FAERS Safety Report 9378946 (Version 2)
Quarter: 2013Q4

REPORT INFORMATION
  Report Type: Spontaneous
  Country: US (occurrence: US)
  Receive Date: 20130702
  Receipt Date: 20131015
  Transmission Date: 20140711
  Serious: No
  Sender: FDA-Public Use
  Company Number: US-PFIZER INC-2013192601

PATIENT
  Age: 64 Year
  Sex: Female

DRUGS (2)
  1. GLUCOTROL XL [Suspect]
     Indication: DIABETES MELLITUS
  2. GLIPIZIDE [Suspect]
     Indication: DIABETES MELLITUS
     Dosage: 10 MG, 2X/DAY
     Dates: end: 201306

REACTIONS (5)
  - Wrong patient received medication [Unknown]
  - Eye disorder [Unknown]
  - Blood glucose increased [Unknown]
  - Malaise [Unknown]
  - Rash [Recovered/Resolved]
